FAERS Safety Report 5140617-2 (Version None)
Quarter: 2006Q4

REPORT INFORMATION
  Report Type: 
  Country: None (occurrence: None)
  Receive Date: 20061019
  Receipt Date: 20061005
  Transmission Date: 20070319
  Serious: Yes (Hospitalization)
  Sender: FDA-Public Use
  Company Number: THYM-11140

PATIENT
  Age: 48 Year
  Sex: Male

DRUGS (8)
  1. THYMOGLOBULIN [Suspect]
     Indication: LIVER TRANSPLANT
     Dosage: 1.5 MG/KG QOD
     Dates: start: 20050818, end: 20050822
  2. PROGRAF [Concomitant]
  3. CELLCEPT [Concomitant]
  4. RENITEC [Concomitant]
  5. ROVALCYTE [Concomitant]
  6. TARDYFERON [Concomitant]
  7. ATARAX [Concomitant]
  8. THERALENE [Concomitant]

REACTIONS (3)
  - FATIGUE [None]
  - GENERAL PHYSICAL HEALTH DETERIORATION [None]
  - SOMNOLENCE [None]
